FAERS Safety Report 8100859-0 (Version None)
Quarter: 2012Q1

REPORT INFORMATION
  Report Type: 
  Country: None (occurrence: None)
  Receive Date: 20120129
  Receipt Date: 20110913
  Transmission Date: 20120608
  Serious: No
  Sender: FDA-Public Use
  Company Number: US-ABBOTT-11P-163-0852983-00

PATIENT
  Sex: Male
  Weight: 99.88 kg

DRUGS (2)
  1. HUMIRA [Suspect]
     Indication: PSORIATIC ARTHROPATHY
     Dates: start: 20110823
  2. HUMIRA [Suspect]
     Indication: PSORIASIS

REACTIONS (11)
  - INJECTION SITE HAEMATOMA [None]
  - SKIN LESION [None]
  - PSORIASIS [None]
  - DRUG EFFECT DECREASED [None]
  - FEELING ABNORMAL [None]
  - WRONG TECHNIQUE IN DRUG USAGE PROCESS [None]
  - JOINT RANGE OF MOTION DECREASED [None]
  - PAIN IN EXTREMITY [None]
  - EMOTIONAL DISTRESS [None]
  - DERMATITIS PSORIASIFORM [None]
  - PAIN [None]
